FAERS Safety Report 8077598-8 (Version None)
Quarter: 2012Q1

REPORT INFORMATION
  Report Type: 
  Country: None (occurrence: None)
  Receive Date: 20120127
  Receipt Date: 20120123
  Transmission Date: 20120608
  Serious: Yes (Other)
  Sender: FDA-Public Use
  Company Number: US-PFIZER INC-2012018696

PATIENT
  Sex: Male
  Weight: 68 kg

DRUGS (5)
  1. ATORVASTATIN CALCIUM [Suspect]
     Indication: BLOOD CHOLESTEROL INCREASED
     Dosage: 20 MG, 1X/DAY
     Route: 048
     Dates: start: 20111001
  2. ACETYLSALICYLIC ACID [Concomitant]
     Dosage: UNK
  3. FUROSEMIDE [Concomitant]
     Indication: BLOOD POTASSIUM INCREASED
     Dosage: UNK
  4. PLAVIX [Suspect]
     Indication: BLOOD DISORDER
     Dosage: 75 MG, 1X/DAY
     Route: 048
     Dates: start: 20111001
  5. CHANTIX [Suspect]
     Indication: SMOKING CESSATION THERAPY
     Dosage: 0.5 MG, 1X/DAY
     Route: 048
     Dates: start: 20111001, end: 20111008

REACTIONS (9)
  - GAIT DISTURBANCE [None]
  - SPEECH DISORDER [None]
  - HYPOAESTHESIA [None]
  - AGITATION [None]
  - INFLUENZA LIKE ILLNESS [None]
  - MOOD ALTERED [None]
  - MALAISE [None]
  - VOMITING [None]
  - APATHY [None]
